FAERS Safety Report 7412380-3 (Version None)
Quarter: 2011Q2

REPORT INFORMATION
  Report Type: 
  Country: None (occurrence: None)
  Receive Date: 20110413
  Receipt Date: 20110408
  Transmission Date: 20111010
  Serious: Yes (Disabling, Other)
  Sender: FDA-Public Use
  Company Number: IT-PFIZER INC-2011078689

PATIENT
  Age: 69 Year
  Sex: Male

DRUGS (2)
  1. CARBOLITHIUM [Concomitant]
     Indication: BIPOLAR DISORDER
     Dosage: 450 MG, UNK
     Route: 048
     Dates: start: 20081215, end: 20110331
  2. CELEBREX [Suspect]
     Indication: ARTHRALGIA
     Dosage: 200 MG, 1X/DAY
     Route: 048
     Dates: start: 20110201

REACTIONS (1)
  - RETINAL HAEMORRHAGE [None]
